FAERS Safety Report 7776125-X (Version None)
Quarter: 2011Q3

REPORT INFORMATION
  Report Type: 
  Country: None (occurrence: None)
  Receive Date: 20110925
  Receipt Date: 20110506
  Transmission Date: 20111222
  Serious: Yes (Hospitalization)
  Sender: FDA-Public Use
  Company Number: PHHY2011NO32396

PATIENT
  Sex: Female
  Weight: 71 kg

DRUGS (3)
  1. TRILEPTAL [Suspect]
     Indication: EPILEPSY
     Dosage: 900 MG, DAILY
     Route: 048
  2. VALPROATE SODIUM [Suspect]
     Dosage: 450 MG + 600 MG
     Route: 048
  3. VALPROATE SODIUM [Suspect]
     Indication: EPILEPSY
     Dosage: 450 MG + 600 MG

REACTIONS (6)
  - DEPRESSIVE SYMPTOM [None]
  - SOMATIC DELUSION [None]
  - AGITATION [None]
  - OBSESSIVE-COMPULSIVE DISORDER [None]
  - ANXIETY [None]
  - HALLUCINATION [None]
